FAERS Safety Report 5025061-0 (Version None)
Quarter: 2006Q2

REPORT INFORMATION
  Report Type: 
  Country: None (occurrence: None)
  Receive Date: 20060426
  Receipt Date: 20060118
  Transmission Date: 20061013
  Serious: Yes (Other)
  Sender: FDA-Public Use
  Company Number: 2006010845

PATIENT
  Age: 59 Year
  Sex: Female
  Weight: 53.0709 kg

DRUGS (4)
  1. LYRICA [Suspect]
     Indication: NEUROLOGICAL SYMPTOM
     Dosage: 75 MG (25 MG,3 IN 1 D)
     Dates: start: 20051201, end: 20060117
  2. PROMETRIUM [Concomitant]
  3. ESTRADIOL [Concomitant]
  4. COLCHICUM JTL LIQ [Concomitant]

REACTIONS (9)
  - BALANCE DISORDER [None]
  - DRY EYE [None]
  - DRY MOUTH [None]
  - HEADACHE [None]
  - SEDATION [None]
  - SPEECH DISORDER [None]
  - THINKING ABNORMAL [None]
  - URINARY RETENTION [None]
  - VISION BLURRED [None]
